FAERS Safety Report 17037105 (Version 4)
Quarter: 2020Q1

REPORT INFORMATION
  Report Type: Spontaneous
  Country: US (occurrence: US)
  Receive Date: 20191115
  Receipt Date: 20200109
  Transmission Date: 20200409
  Serious: Yes (Other)
  Sender: FDA-Public Use
  Company Number: US-PFIZER INC-2019491249

PATIENT
  Age: 91 Year
  Sex: Female
  Weight: 61.69 kg

DRUGS (2)
  1. AROMASIN [Suspect]
     Active Substance: EXEMESTANE
     Indication: METASTATIC NEOPLASM
     Dosage: 25 MG, 1X/DAY
     Route: 048
     Dates: start: 201910
  2. VERZENIO [Suspect]
     Active Substance: ABEMACICLIB
     Indication: METASTATIC NEOPLASM
     Dosage: 150 MG, 2X/DAY
     Route: 048
     Dates: start: 201910

REACTIONS (4)
  - Vomiting [Not Recovered/Not Resolved]
  - Asthenia [Unknown]
  - Weight decreased [Not Recovered/Not Resolved]
  - Nausea [Not Recovered/Not Resolved]

NARRATIVE: CASE EVENT DATE: 201910
